FAERS Safety Report 10258402 (Version 2)
Quarter: 2014Q2

REPORT INFORMATION
  Report Type: Spontaneous
  Country: US (occurrence: US)
  Receive Date: 20140625
  Receipt Date: 20140625
  Transmission Date: 20141212
  Serious: No
  Sender: FDA-Public Use
  Company Number: US-ASTRAZENECA-2008UW28630

PATIENT
  Age: 51 Year
  Sex: Female
  Weight: 46.3 kg

DRUGS (3)
  1. NEXIUM [Suspect]
     Route: 048
  2. OMEPRAZOLE [Suspect]
     Indication: GASTROOESOPHAGEAL REFLUX DISEASE
     Route: 048
     Dates: start: 201310
  3. SEROQUEL [Suspect]
     Route: 048

REACTIONS (3)
  - Vomiting [Unknown]
  - Drug prescribing error [Unknown]
  - Drug ineffective [Unknown]
